FAERS Safety Report 6840239-9 (Version None)
Quarter: 2010Q3

REPORT INFORMATION
  Report Type: 
  Country: None (occurrence: None)
  Receive Date: 20100713
  Receipt Date: 20100713
  Transmission Date: 20110219
  Serious: Yes (Hospitalization)
  Sender: FDA-Public Use
  Company Number: None

PATIENT
  Sex: Female
  Weight: 48 kg

DRUGS (1)
  1. ELSPAR [Suspect]
     Indication: ACUTE MYELOID LEUKAEMIA
     Dosage: 6000 UNITS/ M2 ONCE IM
     Route: 030
     Dates: start: 20100709, end: 20100709

REACTIONS (1)
  - RASH PRURITIC [None]
